FAERS Safety Report 5625484-2 (Version None)
Quarter: 2008Q1

REPORT INFORMATION
  Report Type: 
  Country: None (occurrence: None)
  Receive Date: 20080207
  Receipt Date: 20080124
  Transmission Date: 20080703
  Serious: Yes (Other)
  Sender: FDA-Public Use
  Company Number: A0705305A

PATIENT
  Age: 85 Year
  Sex: Male

DRUGS (1)
  1. ASPIRIN [Suspect]
     Dosage: ORAL
     Route: 048

REACTIONS (4)
  - CONSTIPATION [None]
  - GASTRIC DISORDER [None]
  - LABORATORY TEST ABNORMAL [None]
  - RECTAL HAEMORRHAGE [None]
